FAERS Safety Report 17142466 (Version 2)
Quarter: 2019Q4

REPORT INFORMATION
  Report Type: Spontaneous
  Country: CH (occurrence: CH)
  Receive Date: 20191211
  Receipt Date: 20191223
  Transmission Date: 20200122
  Serious: Yes (Hospitalization)
  Sender: FDA-Public Use
  Company Number: CH-JNJFOC-20191203688

PATIENT
  Age: 66 Year
  Sex: Female
  Weight: 65 kg

DRUGS (10)
  1. CONCOR [Concomitant]
     Active Substance: BISOPROLOL FUMARATE
  2. INVEGA [Suspect]
     Active Substance: PALIPERIDONE
     Indication: DEPRESSION
     Route: 048
  3. RISPERIDONE. [Concomitant]
     Active Substance: RISPERIDONE
     Dosage: AS NECESSARY
     Route: 048
  4. PANTOZOL [Concomitant]
     Active Substance: PANTOPRAZOLE SODIUM
  5. VALDOXAN [Concomitant]
     Active Substance: AGOMELATINE
     Route: 048
  6. CIRCADIN [Suspect]
     Active Substance: MELATONIN
     Indication: DEPRESSION
     Route: 048
  7. LERCANIDIPIN MEPHA LACTAB [Concomitant]
     Route: 065
  8. POTASSIUM BICARBONATE W/POTASSIUM CITRATE [Concomitant]
     Active Substance: POTASSIUM BICARBONATE\POTASSIUM CITRATE
     Route: 065
  9. FLOXAL [Concomitant]
     Active Substance: OFLOXACIN
     Route: 047
  10. VI-DE 3 [Concomitant]
     Active Substance: CHOLECALCIFEROL

REACTIONS (4)
  - Hyponatraemia [Recovering/Resolving]
  - Generalised tonic-clonic seizure [Unknown]
  - Product use in unapproved indication [Unknown]
  - Off label use [Unknown]

NARRATIVE: CASE EVENT DATE: 20191118
